FAERS Safety Report 18472846 (Version 1)
Quarter: 2020Q4

REPORT INFORMATION
  Report Type: Spontaneous
  Country: IT (occurrence: IT)
  Receive Date: 20201106
  Receipt Date: 20201106
  Transmission Date: 20210114
  Serious: Yes (Death, Other)
  Sender: FDA-Public Use
  Company Number: IT-VIIV HEALTHCARE LIMITED-IT2020GSK211945

PATIENT
  Sex: Female
  Weight: 62 kg

DRUGS (3)
  1. RALTEGRAVIR. [Concomitant]
     Active Substance: RALTEGRAVIR
     Indication: HIV INFECTION
     Dosage: UNK
     Dates: start: 201412, end: 201509
  2. DOLUTEGRAVIR [Suspect]
     Active Substance: DOLUTEGRAVIR
     Indication: HIV INFECTION
     Dosage: UNK
     Dates: start: 201509
  3. MARAVIROC [Concomitant]
     Active Substance: MARAVIROC
     Indication: HIV INFECTION
     Dosage: UNK
     Dates: start: 201412, end: 201509

REACTIONS (5)
  - Cerebral haemorrhage [Fatal]
  - Fat tissue increased [Not Recovered/Not Resolved]
  - Ruptured cerebral aneurysm [Fatal]
  - Body fat disorder [Not Recovered/Not Resolved]
  - Weight increased [Not Recovered/Not Resolved]
